FAERS Safety Report 9231165 (Version 2)
Quarter: 2013Q2

REPORT INFORMATION
  Report Type: Spontaneous
  Country: DE (occurrence: DE)
  Receive Date: 20130415
  Receipt Date: 20130527
  Transmission Date: 20140414
  Serious: Yes (Hospitalization, Other)
  Sender: FDA-Public Use
  Company Number: DE-ROCHE-1213867

PATIENT
  Sex: Male
  Weight: 80 kg

DRUGS (7)
  1. MABTHERA [Suspect]
     Indication: CHRONIC LYMPHOCYTIC LEUKAEMIA
     Route: 065
     Dates: start: 2011, end: 2011
  2. MABTHERA [Suspect]
     Route: 065
     Dates: start: 201301, end: 20130206
  3. MABTHERA [Suspect]
     Route: 042
     Dates: start: 20121201
  4. MABTHERA [Suspect]
     Route: 065
     Dates: start: 201001, end: 201006
  5. BENDAMUSTINE [Concomitant]
     Indication: CHRONIC LYMPHOCYTIC LEUKAEMIA
     Route: 042
     Dates: start: 20130108, end: 20130206
  6. BENDAMUSTINE [Concomitant]
     Route: 065
     Dates: start: 201001, end: 201006
  7. L-THYROXIN [Concomitant]
     Indication: HYPOTHYROIDISM
     Route: 048

REACTIONS (5)
  - Toxic skin eruption [Recovering/Resolving]
  - Stomatitis [Unknown]
  - Candida infection [Not Recovered/Not Resolved]
  - Mucosal inflammation [Not Recovered/Not Resolved]
  - Dermatitis exfoliative [Unknown]
